FAERS Safety Report 6740049-7 (Version None)
Quarter: 2010Q2

REPORT INFORMATION
  Report Type: 
  Country: None (occurrence: None)
  Receive Date: 20100520
  Receipt Date: 20090331
  Transmission Date: 20101027
  Serious: Yes (Other)
  Sender: FDA-Public Use
  Company Number: 2009193580

PATIENT
  Age: 57 Year
  Sex: Female
  Weight: 99.8 kg

DRUGS (4)
  1. MEDROXYPROGESTERONE ACETATE [Suspect]
     Indication: MENOPAUSE
     Dosage: 10 MG
     Dates: start: 19921201, end: 19960801
  2. PREMARIN [Suspect]
     Indication: MENOPAUSE
     Dosage: 0.625 MG
     Dates: start: 19921201, end: 19960801
  3. PREMPRO [Suspect]
     Indication: MENOPAUSE
     Dosage: 0.625/2.5MG
     Dates: start: 19960901, end: 20000801
  4. VASOTEC [Concomitant]

REACTIONS (1)
  - BREAST CANCER [None]
